FAERS Safety Report 20529073 (Version 1)
Quarter: 2022Q1

REPORT INFORMATION
  Report Type: Spontaneous
  Country: US (occurrence: US)
  Receive Date: 20220228
  Receipt Date: 20220228
  Transmission Date: 20220423
  Serious: Yes (Other)
  Sender: FDA-Public Use
  Company Number: US-SABAL THERAPEUTICS LLC-2022-ATH-000001

PATIENT
  Sex: Male
  Weight: 2.4 kg

DRUGS (11)
  1. OZOBAX [Suspect]
     Active Substance: BACLOFEN
     Indication: Muscle spasticity
     Dosage: 30 MG, QID
     Route: 064
  2. OZOBAX [Suspect]
     Active Substance: BACLOFEN
     Indication: Spinal cord injury cervical
     Dosage: 0.125 MG/KG/DOSE, EVERY 6 HOURS
     Route: 048
  3. OZOBAX [Suspect]
     Active Substance: BACLOFEN
     Dosage: 0.125 MG/KG/DOSE, EVERY 8 HOURS
     Route: 048
  4. OZOBAX [Suspect]
     Active Substance: BACLOFEN
     Dosage: 0.125 MG/KG/DOSE, EVERY 12 HOURS
     Route: 048
  5. OZOBAX [Suspect]
     Active Substance: BACLOFEN
     Dosage: 0.125 MG/KG/DOSE, EVERY 24 HOURS
     Route: 048
  6. DIAZEPAM [Concomitant]
     Active Substance: DIAZEPAM
     Indication: Muscle spasticity
     Dosage: 2.5 MG, QD, PRN
     Route: 064
  7. DIAZEPAM [Concomitant]
     Active Substance: DIAZEPAM
     Indication: Spinal cord injury cervical
  8. OXYBUTYNIN [Concomitant]
     Active Substance: OXYBUTYNIN
     Indication: Product used for unknown indication
     Dosage: 5 MG, QD
     Route: 064
  9. BUPROPION [Concomitant]
     Active Substance: BUPROPION
     Indication: Product used for unknown indication
     Dosage: 300 MG, QD
     Route: 064
  10. ESCITALOPRAM [Concomitant]
     Active Substance: ESCITALOPRAM OXALATE
     Indication: Product used for unknown indication
     Dosage: 10 MG, QD
     Route: 064
  11. MIDODRINE [Concomitant]
     Active Substance: MIDODRINE
     Indication: Product used for unknown indication
     Dosage: 5 MG, QD
     Route: 064

REACTIONS (2)
  - Drug withdrawal syndrome neonatal [Recovered/Resolved]
  - Foetal exposure during pregnancy [Recovered/Resolved]
